FAERS Safety Report 14668923 (Version 1)
Quarter: 2018Q1

REPORT INFORMATION
  Report Type: Spontaneous
  Country: US (occurrence: US)
  Receive Date: 20180321
  Receipt Date: 20180321
  Transmission Date: 20180509
  Serious: Yes (Other)
  Sender: FDA-Public Use
  Company Number: None

PATIENT
  Age: 75 Year
  Sex: Male
  Weight: 81.9 kg

DRUGS (13)
  1. ZYTIGA [Suspect]
     Active Substance: ABIRATERONE ACETATE
     Indication: PROSTATE CANCER
     Route: 048
     Dates: start: 20171128, end: 20180321
  2. HYDROCHLOROTHIAZIDE. [Concomitant]
     Active Substance: HYDROCHLOROTHIAZIDE
  3. FLUTICASONE. [Concomitant]
     Active Substance: FLUTICASONE
  4. AMIODARONE [Concomitant]
     Active Substance: AMIODARONE
  5. NORCO [Concomitant]
     Active Substance: ACETAMINOPHEN\HYDROCODONE BITARTRATE
  6. RASAGILINE. [Concomitant]
     Active Substance: RASAGILINE
  7. MOMETASONE [Concomitant]
     Active Substance: MOMETASONE
  8. ATORVASTATIN [Concomitant]
     Active Substance: ATORVASTATIN
  9. ALPRAZOLAM. [Concomitant]
     Active Substance: ALPRAZOLAM
  10. PREDNISONE. [Concomitant]
     Active Substance: PREDNISONE
  11. POTASSIUM CHLORIDE. [Concomitant]
     Active Substance: POTASSIUM CHLORIDE
  12. DOCUSATE [Concomitant]
     Active Substance: DOCUSATE
  13. CARBIDOPA-LEVODOPA ER [Concomitant]
     Active Substance: CARBIDOPA\LEVODOPA

REACTIONS (1)
  - Disease progression [None]
